FAERS Safety Report 16175094 (Version 2)
Quarter: 2023Q2

REPORT INFORMATION
  Report Type: Spontaneous
  Country: CH (occurrence: CH)
  Receive Date: 20190409
  Receipt Date: 20230515
  Transmission Date: 20230721
  Serious: Yes (Other)
  Sender: FDA-Public Use
  Company Number: CH-AMGEN-CHESP2019052914

PATIENT

DRUGS (3)
  1. PROLIA [Suspect]
     Active Substance: DENOSUMAB
     Indication: Prophylaxis
     Dosage: 60 MILLIGRAM, Q6MO
     Route: 058
  2. CALCIUM [Concomitant]
     Active Substance: CALCIUM
     Indication: Supplementation therapy
     Dosage: UNK
     Route: 065
  3. VITAMIN D [Concomitant]
     Active Substance: VITAMIN D NOS
     Indication: Supplementation therapy
     Dosage: UNK
     Route: 065

REACTIONS (11)
  - Cytomegalovirus viraemia [Unknown]
  - Renal graft infection [Unknown]
  - Urosepsis [Unknown]
  - Opportunistic infection [Unknown]
  - Transplant rejection [Unknown]
  - Hypocalcaemia [Unknown]
  - Cystitis [Unknown]
  - BK virus infection [Unknown]
  - Off label use [Unknown]
  - Influenza [Unknown]
  - Herpes simplex [Unknown]
